FAERS Safety Report 4611179-0 (Version None)
Quarter: 2005Q2

REPORT INFORMATION
  Report Type: 
  Country: None (occurrence: None)
  Receive Date: 20050314
  Receipt Date: 20040420
  Transmission Date: 20051028
  Serious: Yes (Hospitalization)
  Sender: FDA-Public Use
  Company Number: USA040464853

PATIENT
  Age: 58 Year
  Sex: Male

DRUGS (2)
  1. GEMZAR [Suspect]
     Indication: PANCREATIC CARCINOMA
     Dosage: 2220 MG
     Dates: start: 20031101, end: 20040224
  2. DEXAMETHASONE [Concomitant]

REACTIONS (2)
  - PNEUMONITIS [None]
  - WHITE BLOOD CELL COUNT DECREASED [None]
